FAERS Safety Report 5754585-3 (Version None)
Quarter: 2008Q2

REPORT INFORMATION
  Report Type: 
  Country: None (occurrence: None)
  Receive Date: 20080530
  Receipt Date: 20080519
  Transmission Date: 20081010
  Serious: Yes (Hospitalization)
  Sender: FDA-Public Use
  Company Number: JP-PFIZER INC-2008043386

PATIENT
  Age: 76 Year
  Sex: Male

DRUGS (2)
  1. VFEND [Suspect]
     Indication: FUNGAL INFECTION
     Dosage: DAILY DOSE:400MG
     Route: 042
     Dates: start: 20080425, end: 20080430
  2. VFEND [Suspect]
     Indication: EYE INFECTION FUNGAL
     Dosage: DAILY DOSE:400MG
     Route: 042
     Dates: start: 20080513, end: 20080515

REACTIONS (2)
  - DELUSION [None]
  - MANIA [None]
